FAERS Safety Report 8986781 (Version 1)
Quarter: 2012Q4

REPORT INFORMATION
  Report Type: Report from Study
  Country: BR (occurrence: BR)
  Receive Date: 20121227
  Receipt Date: 20121227
  Transmission Date: 20130627
  Serious: Yes (Death, Hospitalization, Other)
  Sender: FDA-Public Use
  Company Number: PHHO2012BR015615

PATIENT
  Age: 65 Year
  Sex: Male
  Weight: 80 kg

DRUGS (9)
  1. MYFORTIC [Suspect]
     Indication: IMMUNOSUPPRESSION
     Dosage: 720 mg, BID
     Route: 048
     Dates: start: 20120925, end: 20121207
  2. MYFORTIC [Suspect]
     Dosage: 720 mg, BID
     Route: 048
     Dates: end: 20121018
  3. MYFORTIC [Suspect]
     Dosage: 720 mg, BID
     Route: 048
     Dates: end: 20121207
  4. PREDNISONE [Suspect]
     Indication: IMMUNOSUPPRESSION
     Dosage: 45 mg, BID (20 mg and 25 mg 2xday)
     Route: 048
     Dates: start: 20120924, end: 20121121
  5. PREDNISONE [Suspect]
     Dosage: 20 mg, UNK
     Route: 048
     Dates: start: 20121124, end: 20121207
  6. TACROLIMUS [Suspect]
     Indication: IMMUNOSUPPRESSION
     Dosage: 5 mg, BID
     Route: 048
     Dates: start: 20120930, end: 20121120
  7. TACROLIMUS [Suspect]
     Dosage: 4 mg, UNK
     Route: 048
     Dates: start: 20121201, end: 20121203
  8. TACROLIMUS [Suspect]
     Dosage: 3 mg, BID
     Route: 048
     Dates: start: 20121204, end: 20121207
  9. NO TREATMENT RECEIVED [Suspect]
     Indication: RENAL TRANSPLANT

REACTIONS (5)
  - Respiratory distress [Fatal]
  - Strongyloidiasis [Fatal]
  - Cytomegalovirus infection [Recovered/Resolved]
  - Arteriovenous fistula site infection [Recovering/Resolving]
  - Metabolic disorder [Recovered/Resolved]
